FAERS Safety Report 13691360 (Version 1)
Quarter: 2017Q2

REPORT INFORMATION
  Report Type: Spontaneous
  Country: US (occurrence: US)
  Receive Date: 20170626
  Receipt Date: 20170626
  Transmission Date: 20170830
  Serious: Yes (Hospitalization)
  Sender: FDA-Public Use
  Company Number: US-ROCHE-1200261

PATIENT
  Age: 49 Year
  Sex: Female
  Weight: 68.2 kg

DRUGS (2)
  1. TNKASE [Suspect]
     Active Substance: TENECTEPLASE
     Indication: CEREBROVASCULAR ACCIDENT
     Route: 065
  2. ACTIVASE [Suspect]
     Active Substance: ALTEPLASE
     Indication: CEREBROVASCULAR ACCIDENT
     Route: 065

REACTIONS (1)
  - Wrong drug administered [Unknown]

NARRATIVE: CASE EVENT DATE: 20130307
